FAERS Safety Report 25700342 (Version 3)
Quarter: 2025Q4

REPORT INFORMATION
  Report Type: Report from Study
  Country: CA (occurrence: CA)
  Receive Date: 20250819
  Receipt Date: 20251111
  Transmission Date: 20260118
  Serious: Yes (Other)
  Sender: CELLTRION
  Company Number: CA-CELLTRION INC.-2025CA021493

PATIENT

DRUGS (3)
  1. INFLIXIMAB-DYYB [Suspect]
     Active Substance: INFLIXIMAB-DYYB
     Indication: Colitis ulcerative
     Dosage: MAINTENANCE - 400 MG EVERY 6 WEEKS
     Route: 042
     Dates: start: 20250628
  2. INFLIXIMAB-DYYB [Suspect]
     Active Substance: INFLIXIMAB-DYYB
     Dosage: MAINTENANCE - 400 MG EVERY 6 WEEKS
     Route: 042
     Dates: start: 20250918
  3. INFLIXIMAB-DYYB [Suspect]
     Active Substance: INFLIXIMAB-DYYB
     Dosage: MAINTENANCE - 400 MG EVERY 6 WEEKS
     Route: 042
     Dates: start: 20251101

REACTIONS (6)
  - Inguinal hernia [Unknown]
  - Post procedural swelling [Recovering/Resolving]
  - Post procedural inflammation [Recovering/Resolving]
  - Weight increased [Unknown]
  - Off label use [Unknown]
  - Inappropriate schedule of product administration [Unknown]

NARRATIVE: CASE EVENT DATE: 20250628
